FAERS Safety Report 21335455 (Version 2)
Quarter: 2022Q4

REPORT INFORMATION
  Report Type: Spontaneous
  Country: JP (occurrence: JP)
  Receive Date: 20220915
  Receipt Date: 20221013
  Transmission Date: 20230113
  Serious: Yes (Hospitalization, Other)
  Sender: FDA-Public Use
  Company Number: JP-BRISTOL-MYERS SQUIBB COMPANY-2022-104937

PATIENT
  Age: 78 Year
  Sex: Male

DRUGS (2)
  1. YERVOY [Suspect]
     Active Substance: IPILIMUMAB
     Indication: Pleural mesothelioma malignant
     Dosage: 1?/3?
     Route: 041
     Dates: start: 20220810, end: 20220810
  2. OPDIVO [Suspect]
     Active Substance: NIVOLUMAB
     Indication: Pleural mesothelioma malignant
     Dosage: 1???WK
     Route: 041
     Dates: start: 20220810, end: 20220810

REACTIONS (3)
  - Liver disorder [Recovering/Resolving]
  - Eyelid ptosis [Recovering/Resolving]
  - Myasthenia gravis [Unknown]

NARRATIVE: CASE EVENT DATE: 20220813
